FAERS Safety Report 6868424-0 (Version None)
Quarter: 2010Q3

REPORT INFORMATION
  Report Type: 
  Country: None (occurrence: None)
  Receive Date: 20100722
  Receipt Date: 20080521
  Transmission Date: 20110219
  Serious: No
  Sender: FDA-Public Use
  Company Number: US-PFIZER INC-2008045800

PATIENT
  Sex: Male
  Weight: 63.6 kg

DRUGS (3)
  1. CHANTIX [Suspect]
     Indication: SMOKING CESSATION THERAPY
     Route: 048
     Dates: start: 20070901, end: 20071101
  2. ATENOLOL [Concomitant]
  3. ZESTRIL [Concomitant]

REACTIONS (3)
  - DEPRESSED MOOD [None]
  - NIGHTMARE [None]
  - SLEEP DISORDER [None]
